FAERS Safety Report 15919847 (Version 1)
Quarter: 2019Q1

REPORT INFORMATION
  Report Type: Spontaneous
  Country: US (occurrence: US)
  Receive Date: 20190205
  Receipt Date: 20190205
  Transmission Date: 20190417
  Serious: No
  Sender: FDA-Public Use
  Company Number: US-ROCHE-2138137

PATIENT
  Age: 60 Year
  Sex: Female
  Weight: 56.3 kg

DRUGS (4)
  1. XOLAIR [Suspect]
     Active Substance: OMALIZUMAB
     Route: 058
     Dates: start: 20180607
  2. XOLAIR [Suspect]
     Active Substance: OMALIZUMAB
     Indication: ASTHMA
     Route: 058
     Dates: start: 201105
  3. XOLAIR [Suspect]
     Active Substance: OMALIZUMAB
     Dosage: RECEIVED THE XOLAIR INJECTION 4 WEEKS AGO
     Route: 058
     Dates: start: 201805
  4. XOLAIR [Suspect]
     Active Substance: OMALIZUMAB
     Dosage: RECEIVING XOLAIR 8 WEEKS AGO
     Route: 058
     Dates: start: 201804

REACTIONS (5)
  - Cough [Not Recovered/Not Resolved]
  - Asthma [Not Recovered/Not Resolved]
  - Lacrimation increased [Not Recovered/Not Resolved]
  - Sneezing [Not Recovered/Not Resolved]
  - Secretion discharge [Not Recovered/Not Resolved]

NARRATIVE: CASE EVENT DATE: 201804
